FAERS Safety Report 5294656-1 (Version None)
Quarter: 2007Q2

REPORT INFORMATION
  Report Type: 
  Country: None (occurrence: None)
  Receive Date: 20070409
  Receipt Date: 20070409
  Transmission Date: 20071010
  Serious: Yes (Hospitalization)
  Sender: FDA-Public Use
  Company Number: None

PATIENT
  Sex: Female
  Weight: 164.2021 kg

DRUGS (3)
  1. FLUOROURACIL [Suspect]
     Indication: HYPOPHARYNGEAL CANCER
     Dosage: 600MG/M2  IV  QD X5D
     Route: 042
     Dates: start: 20070318, end: 20070323
  2. HYDREA [Suspect]
     Indication: HYPOPHARYNGEAL CANCER
     Dosage: 500MG  PO  BID
     Route: 048
     Dates: start: 20070318, end: 20070323
  3. CETUXIMAB 250MG/M2 IV Q WEEK [Suspect]
     Indication: HYPOPHARYNGEAL CANCER
     Dosage: 250MG/M2 IV Q WEEK
     Route: 042
     Dates: start: 20070327

REACTIONS (3)
  - CATHETER SITE ERYTHEMA [None]
  - CATHETER SITE PAIN [None]
  - MEDICAL DEVICE PAIN [None]
